FAERS Safety Report 5919681-6 (Version None)
Quarter: 2008Q4

REPORT INFORMATION
  Report Type: 
  Country: None (occurrence: None)
  Receive Date: 20081010
  Receipt Date: 20081002
  Transmission Date: 20090506
  Serious: Yes (Other)
  Sender: FDA-Public Use
  Company Number: TUK2008A00120

PATIENT
  Age: 59 Year
  Sex: Male

DRUGS (9)
  1. ACTOS [Suspect]
     Indication: TYPE 2 DIABETES MELLITUS
     Dosage: 15 MG
     Route: 048
     Dates: start: 20080819
  2. AMLODIPINE (AMLODIPINE) [Concomitant]
  3. APIDRA [Concomitant]
  4. ASPIRIN [Concomitant]
  5. BENDROFLUMETHIAZIDE (BENDROFLUMETHIAZIDE) [Concomitant]
  6. LANTUS [Concomitant]
  7. METFORMIN HCL [Concomitant]
  8. RAMIPRIL [Concomitant]
  9. SIMVASTATIN (SIMAVASTATIN) [Concomitant]

REACTIONS (1)
  - MUSCLE RUPTURE [None]
